FAERS Safety Report 7394780-3 (Version None)
Quarter: 2011Q2

REPORT INFORMATION
  Report Type: 
  Country: None (occurrence: None)
  Receive Date: 20110405
  Receipt Date: 20110319
  Transmission Date: 20111010
  Serious: No
  Sender: FDA-Public Use
  Company Number: US-B.I. PHARMACEUTICALS,INC./RIDGEFIELD-2011-BP-08740BP

PATIENT
  Sex: Female

DRUGS (21)
  1. MUCINEX [Concomitant]
     Indication: HYPERSENSITIVITY
  2. CALTRATE 600 + D [Concomitant]
     Indication: ROUTINE HEALTH MAINTENANCE
     Route: 048
  3. PRAVASTATIN [Concomitant]
     Indication: BLOOD CHOLESTEROL
     Dosage: 20 MG
     Route: 048
  4. VERAPAMIL [Concomitant]
     Dosage: 360 MG
     Route: 048
  5. CLARITIN [Concomitant]
     Indication: HYPERSENSITIVITY
     Route: 048
  6. VITAMIN D [Concomitant]
     Indication: ROUTINE HEALTH MAINTENANCE
     Dosage: 1000 U
  7. MULTI-VITAMIN [Concomitant]
     Indication: ROUTINE HEALTH MAINTENANCE
  8. DIGOXIN [Concomitant]
     Indication: CARDIAC DISORDER
     Dosage: 1/2 TAB DAILY
     Route: 048
     Dates: start: 20110101
  9. MUCINEX [Concomitant]
     Indication: SINUS DISORDER
  10. GLUCOSAMINE [Concomitant]
     Indication: ROUTINE HEALTH MAINTENANCE
  11. VITAMIN B-12 [Concomitant]
     Indication: ROUTINE HEALTH MAINTENANCE
     Dosage: 1000 MG
  12. TAMOXIFEN CITRATE [Concomitant]
     Indication: BREAST DISORDER
     Dosage: 20 MG
     Route: 048
  13. NEXIUM [Concomitant]
     Indication: DYSPEPSIA
     Dosage: 40 MG
     Route: 048
  14. MAGNESIUM [Concomitant]
     Indication: ROUTINE HEALTH MAINTENANCE
     Route: 048
  15. PRADAXA [Suspect]
     Indication: ATRIAL FIBRILLATION
     Dosage: 300 MG
     Route: 048
     Dates: start: 20110202
  16. NASONEX [Concomitant]
     Indication: HYPERSENSITIVITY
     Dosage: 2 SPRAYS EACH NOSTRIL TWICE DAILY
     Route: 045
  17. COENZYME Q10 [Concomitant]
     Indication: ROUTINE HEALTH MAINTENANCE
     Dosage: 200 MG
     Route: 048
  18. METOPROLOL TARTRATE [Concomitant]
     Dosage: 200 MG
     Route: 048
  19. FUROSEMIDE [Concomitant]
     Dosage: 20 MG
     Route: 048
  20. ASCORBIC ACID [Concomitant]
     Indication: ROUTINE HEALTH MAINTENANCE
     Dosage: 1000 MG
  21. B COMPLETE WITH FOLIC AND VITAMIN C [Concomitant]
     Indication: ROUTINE HEALTH MAINTENANCE

REACTIONS (2)
  - SINUS HEADACHE [None]
  - EYELID PAIN [None]
